FAERS Safety Report 6159222-4 (Version None)
Quarter: 2009Q2

REPORT INFORMATION
  Report Type: 
  Country: None (occurrence: None)
  Receive Date: 20090417
  Receipt Date: 20090407
  Transmission Date: 20091009
  Serious: Yes (Death, Life-Threatening, Disabling, Other)
  Sender: FDA-Public Use
  Company Number: JP-PFIZER INC-2009167029

PATIENT

DRUGS (5)
  1. SUNITINIB MALATE [Suspect]
     Indication: RENAL CELL CARCINOMA
     Dosage: 50 MG, 1X/DAY
     Dates: start: 20081020, end: 20090309
  2. RINDERON-V [Concomitant]
     Route: 062
     Dates: start: 20081110, end: 20081201
  3. MICARDIS [Concomitant]
     Dosage: UNK
     Route: 048
     Dates: end: 20090217
  4. ALDACTONE [Concomitant]
     Dosage: UNK
     Route: 048
     Dates: end: 20090217
  5. ATELEC [Concomitant]
     Dosage: UNK
     Route: 048
     Dates: end: 20090217

REACTIONS (8)
  - BLOOD CREATINE PHOSPHOKINASE INCREASED [None]
  - BLOOD CREATININE INCREASED [None]
  - BLOOD LACTATE DEHYDROGENASE INCREASED [None]
  - BLOOD URIC ACID INCREASED [None]
  - DEATH [None]
  - ELECTROLYTE IMBALANCE [None]
  - HEPATIC FUNCTION ABNORMAL [None]
  - METASTASES TO LIVER [None]
